FAERS Safety Report 9019716 (Version 2)
Quarter: 2015Q2

REPORT INFORMATION
  Report Type: Report from Study
  Country: GB (occurrence: GB)
  Receive Date: 20130118
  Receipt Date: 20150519
  Transmission Date: 20150821
  Serious: Yes (Hospitalization)
  Sender: FDA-Public Use
  Company Number: GB-ROCHE-1178842

PATIENT
  Age: 58 Year
  Sex: Male

DRUGS (6)
  1. EPIRUBICIN [Suspect]
     Active Substance: EPIRUBICIN
     Indication: GASTRIC CANCER
     Dosage: DATE OF MOST RECENT DOSE: 07/SEP/2012
     Route: 042
     Dates: start: 20120727
  2. CISPLATIN. [Suspect]
     Active Substance: CISPLATIN
     Indication: GASTRIC CANCER
     Dosage: DATE OF MOST RECENT DOSE: 07/SEP/2012
     Route: 042
     Dates: start: 20120727
  3. DEXAMETHASONE. [Concomitant]
     Active Substance: DEXAMETHASONE
     Indication: PRODUCT USED FOR UNKNOWN INDICATION
     Route: 042
     Dates: start: 20120907, end: 20120910
  4. INSULIN [Suspect]
     Active Substance: INSULIN NOS
     Indication: PRODUCT USED FOR UNKNOWN INDICATION
     Route: 058
  5. CAPECITABINE. [Suspect]
     Active Substance: CAPECITABINE
     Indication: GASTRIC CANCER
     Dosage: 1000MG MORNING+1500MG EVENING,DATE OF MOST RECENT DOSE: 28/SEP/2012
     Route: 048
     Dates: start: 20120727
  6. BEVACIZUMAB [Suspect]
     Active Substance: BEVACIZUMAB
     Indication: GASTRIC CANCER
     Dosage: DATE OF MOST RECENT DOSE: 07/SEP/2012
     Route: 042
     Dates: start: 20120727

REACTIONS (1)
  - Anastomotic leak [Not Recovered/Not Resolved]

NARRATIVE: CASE EVENT DATE: 20121121
